FAERS Safety Report 25979803 (Version 2)
Quarter: 2025Q4

REPORT INFORMATION
  Report Type: Spontaneous
  Country: CH (occurrence: CH)
  Receive Date: 20251030
  Receipt Date: 20251209
  Transmission Date: 20260117
  Serious: Yes (Other)
  Sender: TEVA
  Company Number: CH-TEVA-VS-3385446

PATIENT
  Age: 41 Year
  Sex: Male

DRUGS (1)
  1. CIPROFLOXACIN [Suspect]
     Active Substance: CIPROFLOXACIN
     Indication: Product used for unknown indication
     Dosage: RECEIVED A TOTAL DOSE OF 3G
     Route: 065

REACTIONS (4)
  - Disability [Unknown]
  - Paraesthesia [Unknown]
  - Palpitations [Unknown]
  - Tendon pain [Unknown]
